FAERS Safety Report 21298019 (Version 1)
Quarter: 2022Q3

REPORT INFORMATION
  Report Type: Spontaneous
  Country: US (occurrence: None)
  Receive Date: 20220901
  Receipt Date: 20220901
  Transmission Date: 20221027
  Serious: No
  Sender: FDA-Public Use
  Company Number: None

PATIENT
  Sex: Male

DRUGS (2)
  1. TREPROSTINIL SODIUM [Suspect]
     Active Substance: TREPROSTINIL SODIUM
  2. TADALAFIL [Suspect]
     Active Substance: TADALAFIL

REACTIONS (4)
  - Polyuria [None]
  - Circumstance or information capable of leading to device use error [None]
  - Treatment noncompliance [None]
  - Product dose omission in error [None]
